FAERS Safety Report 9972173 (Version 1)
Quarter: 2014Q1

REPORT INFORMATION
  Report Type: Report from Study
  Country: US (occurrence: US)
  Receive Date: 20140306
  Receipt Date: 20140306
  Transmission Date: 20141002
  Serious: No
  Sender: FDA-Public Use
  Company Number: US-ABBVIE-13P-163-1148586-00

PATIENT
  Age: 43 Year
  Sex: Male

DRUGS (6)
  1. HUMIRA [Suspect]
     Indication: CROHN^S DISEASE
     Dates: start: 201306
  2. AMLODIPINE [Concomitant]
     Indication: CROHN^S DISEASE
     Dosage: 5MG DAILY
     Route: 048
  3. AZATHIOPRINE [Concomitant]
     Indication: CROHN^S DISEASE
     Route: 048
  4. OMEPRAZOLE [Concomitant]
     Indication: GASTROOESOPHAGEAL REFLUX DISEASE
     Route: 048
  5. CRESTOR [Concomitant]
     Indication: BLOOD CHOLESTEROL
     Dosage: 5MG HALF TABLET BY MOUTH
     Route: 048
  6. AMITRIPTYLINE [Concomitant]
     Indication: CROHN^S DISEASE
     Dosage: BEDTIME
     Route: 048

REACTIONS (3)
  - Defaecation urgency [Not Recovered/Not Resolved]
  - Diarrhoea [Not Recovered/Not Resolved]
  - Arthralgia [Not Recovered/Not Resolved]
